FAERS Safety Report 11857030 (Version 3)
Quarter: 2016Q1

REPORT INFORMATION
  Report Type: Spontaneous
  Country: US (occurrence: US)
  Receive Date: 20151221
  Receipt Date: 20160112
  Transmission Date: 20160526
  Serious: Yes (Other)
  Sender: FDA-Public Use
  Company Number: US-PFIZER INC-2015455549

PATIENT
  Sex: Female

DRUGS (1)
  1. XANAX [Suspect]
     Active Substance: ALPRAZOLAM
     Dosage: 0.25 (UNIT NOT PROVIDED) AS NEEDED

REACTIONS (3)
  - Blood pressure abnormal [Unknown]
  - Drug intolerance [Unknown]
  - Cerebrovascular accident [Unknown]
